FAERS Safety Report 9637937 (Version 3)
Quarter: 2015Q4

REPORT INFORMATION
  Report Type: Spontaneous
  Country: US (occurrence: US)
  Receive Date: 20131022
  Receipt Date: 20151223
  Transmission Date: 20160305
  Serious: Yes (Hospitalization)
  Sender: FDA-Public Use
  Company Number: US-PFIZER INC-2013299806

PATIENT
  Age: 71 Year
  Sex: Female
  Weight: 84.35 kg

DRUGS (6)
  1. RELPAX [Suspect]
     Active Substance: ELETRIPTAN HYDROBROMIDE
     Indication: MIGRAINE
     Dosage: 25MG TABLET THREE OR FOUR TABLETS A MONTH, AS NEEDED
     Route: 048
     Dates: start: 2003
  2. RELPAX [Suspect]
     Active Substance: ELETRIPTAN HYDROBROMIDE
     Dosage: 40 MG TABLET, 2X/WEEK (UP TO 8 TABLETS A MONTH)
  3. RELPAX [Suspect]
     Active Substance: ELETRIPTAN HYDROBROMIDE
     Dosage: 25MG EVERY 3 DAYS, AS NEEDED
     Route: 048
     Dates: end: 201310
  4. RELPAX [Suspect]
     Active Substance: ELETRIPTAN HYDROBROMIDE
     Dosage: 25 MG, EVERY OTHER DAY
     Route: 048
     Dates: start: 201310
  5. EXCEDRIN MIGRAINE [Concomitant]
     Active Substance: ACETAMINOPHEN\ASPIRIN\CAFFEINE
     Indication: MIGRAINE
     Dosage: UNK
  6. RELPAX [Suspect]
     Active Substance: ELETRIPTAN HYDROBROMIDE
     Dosage: 80 MG, WEEKLY (2 X 40MG PER WEEK)

REACTIONS (11)
  - Drug effect incomplete [Unknown]
  - Gait disturbance [Unknown]
  - Headache [Unknown]
  - Hip fracture [Recovering/Resolving]
  - Tension [Recovered/Resolved]
  - Drug effect delayed [Unknown]
  - Tension headache [Recovered/Resolved]
  - Condition aggravated [Unknown]
  - Drug effect decreased [Unknown]
  - Drug tolerance [Unknown]
  - Stress [Recovered/Resolved]

NARRATIVE: CASE EVENT DATE: 201309
